FAERS Safety Report 15235105 (Version 1)
Quarter: 2018Q3

REPORT INFORMATION
  Report Type: Spontaneous
  Country: GB (occurrence: GB)
  Receive Date: 20180803
  Receipt Date: 20180803
  Transmission Date: 20181010
  Serious: No
  Sender: FDA-Public Use
  Company Number: GB-ALKEM LABORATORIES LIMITED-GB-ALKEM-2018-05224

PATIENT
  Age: 52 Year
  Sex: Female

DRUGS (1)
  1. CEFUROXIME AXETIL. [Suspect]
     Active Substance: CEFUROXIME AXETIL
     Indication: INFECTION PROPHYLAXIS
     Dosage: 1.5 G, UNK
     Route: 065
     Dates: start: 201707, end: 201707

REACTIONS (2)
  - Paraesthesia [Not Recovered/Not Resolved]
  - Extravasation [Unknown]

NARRATIVE: CASE EVENT DATE: 2017
